FAERS Safety Report 24828352 (Version 1)
Quarter: 2025Q1

REPORT INFORMATION
  Report Type: Spontaneous
  Country: US (occurrence: US)
  Receive Date: 20250109
  Receipt Date: 20250109
  Transmission Date: 20250408
  Serious: No
  Sender: ROCHE
  Company Number: US-ROCHE-10000174113

PATIENT
  Sex: Female

DRUGS (8)
  1. ACTEMRA ACTPEN [Suspect]
     Active Substance: TOCILIZUMAB
     Indication: Rheumatoid arthritis
     Dosage: INJECT 162MG SUBCUTANEOUSLY ONCE WEEKLY
     Route: 058
     Dates: start: 20241226
  2. AMLODIPINE + TAB 5MG [Concomitant]
  3. CARVEDILOL [Concomitant]
     Active Substance: CARVEDILOL
  4. CHLORTHALIDO TAB 25MG [Concomitant]
  5. OLMESARTAN M TAB 40MG [Concomitant]
  6. ROSUVASTATIN [Concomitant]
     Active Substance: ROSUVASTATIN
  7. TYLENOL EXTR TAB 500MG [Concomitant]
  8. XARELTO [Concomitant]
     Active Substance: RIVAROXABAN

REACTIONS (3)
  - Muscle spasms [Not Recovered/Not Resolved]
  - Trigger finger [Not Recovered/Not Resolved]
  - Spinal stenosis [Not Recovered/Not Resolved]
